FAERS Safety Report 12474884 (Version 1)
Quarter: 2016Q2

REPORT INFORMATION
  Report Type: Spontaneous
  Country: US (occurrence: US)
  Receive Date: 20160617
  Receipt Date: 20160617
  Transmission Date: 20160815
  Serious: Yes (Other)
  Sender: FDA-Public Use
  Company Number: US-ROCHE-1776787

PATIENT
  Age: 51 Year
  Sex: Female

DRUGS (10)
  1. HYDRALAZINE [Concomitant]
     Active Substance: HYDRALAZINE HYDROCHLORIDE
     Indication: BLOOD PRESSURE MEASUREMENT
  2. PROPOFOL. [Concomitant]
     Active Substance: PROPOFOL
  3. INSULIN [Concomitant]
     Active Substance: INSULIN NOS
  4. SPIRONOLACTONE. [Concomitant]
     Active Substance: SPIRONOLACTONE
     Route: 065
  5. VALCYTE [Suspect]
     Active Substance: VALGANCICLOVIR HYDROCHLORIDE
     Indication: CYTOMEGALOVIRUS COLITIS
     Route: 065
     Dates: start: 201605, end: 20160609
  6. CEFEPIME [Concomitant]
     Active Substance: CEFEPIME HYDROCHLORIDE
     Route: 065
  7. IMMUNOGLOBULIN [Concomitant]
     Active Substance: HUMAN IMMUNOGLOBULIN G
     Route: 065
  8. KEPPRA [Concomitant]
     Active Substance: LEVETIRACETAM
     Indication: SEIZURE
     Route: 065
  9. FENTANYL. [Concomitant]
     Active Substance: FENTANYL
  10. THIAMINE. [Concomitant]
     Active Substance: THIAMINE

REACTIONS (6)
  - Renal impairment [Recovering/Resolving]
  - Shock [Unknown]
  - Hepatic enzyme increased [Not Recovered/Not Resolved]
  - Thrombocytopenia [Unknown]
  - Seizure [Unknown]
  - Nervous system disorder [Unknown]

NARRATIVE: CASE EVENT DATE: 20160614
